FAERS Safety Report 10398377 (Version 1)
Quarter: 2014Q3

REPORT INFORMATION
  Report Type: Spontaneous
  Country: US (occurrence: None)
  Receive Date: 20140819
  Receipt Date: 20140819
  Transmission Date: 20150326
  Serious: Yes (Hospitalization)
  Sender: FDA-Public Use
  Company Number: US-016638

PATIENT
  Sex: Male

DRUGS (2)
  1. FIRMAGON [Suspect]
     Active Substance: DEGARELIX ACETATE
     Indication: PROSTATE CANCER
     Route: 058
     Dates: start: 20140311, end: 20140311
  2. LUPRON [Suspect]
     Active Substance: LEUPROLIDE ACETATE
     Dates: start: 201404, end: 201404

REACTIONS (3)
  - Acute psychosis [None]
  - Personality change [None]
  - Injection site nodule [None]

NARRATIVE: CASE EVENT DATE: 201403
